FAERS Safety Report 18546947 (Version 3)
Quarter: 2021Q1

REPORT INFORMATION
  Report Type: Report from Study
  Country: US (occurrence: US)
  Receive Date: 20201125
  Receipt Date: 20210112
  Transmission Date: 20210419
  Serious: Yes (Other)
  Sender: FDA-Public Use
  Company Number: US-TAKEDA-2020TUS051569

PATIENT
  Age: 42 Year
  Sex: Female

DRUGS (10)
  1. MAG?OX [Concomitant]
     Active Substance: MAGNESIUM OXIDE
     Indication: INTESTINAL OBSTRUCTION
     Dosage: 400 MILLIGRAM
     Route: 048
     Dates: start: 2018
  2. MAG?OX [Concomitant]
     Active Substance: MAGNESIUM OXIDE
     Indication: CONSTIPATION
  3. METAMUCIL [Concomitant]
     Active Substance: PLANTAGO SEED
     Indication: INTESTINAL OBSTRUCTION
     Dosage: UNK UNK, QD
     Route: 048
     Dates: start: 2018
  4. VEDOLIZUMAB [Suspect]
     Active Substance: VEDOLIZUMAB
     Indication: CROHN^S DISEASE
     Dosage: UNK
     Route: 042
     Dates: start: 20190222, end: 20190723
  5. ESTARYLLA [Concomitant]
     Active Substance: ETHINYL ESTRADIOL\NORGESTIMATE
     Indication: ORAL CONTRACEPTION
     Dosage: 0.25 MILLIGRAM
     Route: 048
     Dates: start: 202003
  6. METAMUCIL [Concomitant]
     Active Substance: PLANTAGO SEED
     Indication: CONSTIPATION
  7. ZOFRAN [Concomitant]
     Active Substance: ONDANSETRON HYDROCHLORIDE
     Indication: NAUSEA
     Dosage: 4 MILLIGRAM
     Route: 048
     Dates: start: 20200326
  8. REMICADE [Concomitant]
     Active Substance: INFLIXIMAB
     Dosage: 400 MILLIGRAM
     Route: 042
     Dates: start: 20200812, end: 20200923
  9. INFLIXIMAB [Concomitant]
     Active Substance: INFLIXIMAB
     Dosage: UNK
  10. ZOLOFT [Concomitant]
     Active Substance: SERTRALINE HYDROCHLORIDE
     Indication: DEPRESSION
     Dosage: 50 MILLIGRAM
     Route: 048
     Dates: start: 2018

REACTIONS (1)
  - B-cell lymphoma [Not Recovered/Not Resolved]

NARRATIVE: CASE EVENT DATE: 20201109
